FAERS Safety Report 8790017 (Version 1)
Quarter: 2012Q4

REPORT INFORMATION
  Report Type: 
  Country: US (occurrence: US)
  Receive Date: 20120917
  Receipt Date: 20120917
  Transmission Date: 20130627
  Serious: No
  Sender: FDA-Public Use
  Company Number: US-009507513-1209USA005280

PATIENT

DRUGS (2)
  1. PEGINTRON [Suspect]
     Indication: HEPATITIS C
     Dosage: UNK
     Dates: start: 19980101, end: 19981201
  2. REBETOL [Suspect]
     Indication: HEPATITIS C
     Dosage: UNK
     Dates: start: 19980101, end: 19981201

REACTIONS (6)
  - Depression [Unknown]
  - Migraine [Not Recovered/Not Resolved]
  - Photophobia [Unknown]
  - Hyperacusis [Unknown]
  - Drug ineffective [Unknown]
  - Drug ineffective [Unknown]
